FAERS Safety Report 25202667 (Version 1)
Quarter: 2025Q2

REPORT INFORMATION
  Report Type: Spontaneous
  Country: US (occurrence: None)
  Receive Date: 20250416
  Receipt Date: 20250416
  Transmission Date: 20250717
  Serious: Yes (Death, Hospitalization)
  Sender: FDA-CTU
  Company Number: None

PATIENT
  Age: 69 Year
  Sex: Male
  Weight: 111.5 kg

DRUGS (1)
  1. TEMOZOLOMIDE [Suspect]
     Active Substance: TEMOZOLOMIDE

REACTIONS (14)
  - Sepsis [None]
  - Shock [None]
  - Neutropenia [None]
  - Respiratory failure [None]
  - Metabolic acidosis [None]
  - Acute kidney injury [None]
  - Coagulopathy [None]
  - International normalised ratio increased [None]
  - Hypertransaminasaemia [None]
  - Pneumonia [None]
  - Metastatic neoplasm [None]
  - Haemodynamic instability [None]
  - Atrial fibrillation [None]
  - Continuous haemodiafiltration [None]

NARRATIVE: CASE EVENT DATE: 20250414
